FAERS Safety Report 11029314 (Version 1)
Quarter: 2015Q2

REPORT INFORMATION
  Report Type: Spontaneous
  Country: KR (occurrence: KR)
  Receive Date: 20150415
  Receipt Date: 20150415
  Transmission Date: 20150821
  Serious: Yes (Hospitalization, Other)
  Sender: FDA-Public Use
  Company Number: KR-ROCHE-1560758

PATIENT
  Sex: Male

DRUGS (1)
  1. PEGASYS [Suspect]
     Active Substance: PEGINTERFERON ALFA-2A
     Indication: CHRONIC HEPATITIS C
     Route: 065

REACTIONS (6)
  - Chills [Not Recovered/Not Resolved]
  - Oliguria [Unknown]
  - Pain [Not Recovered/Not Resolved]
  - Hepatic cirrhosis [Unknown]
  - Suicidal ideation [Not Recovered/Not Resolved]
  - Cardiac failure acute [Unknown]
